FAERS Safety Report 16062856 (Version 3)
Quarter: 2019Q2

REPORT INFORMATION
  Report Type: Other
  Country: CZ (occurrence: CZ)
  Receive Date: 20190312
  Receipt Date: 20190416
  Transmission Date: 20190711
  Serious: Yes (Hospitalization)
  Sender: FDA-Public Use
  Company Number: CZ-APOTEX-2019AP009007

PATIENT
  Age: 25 Year
  Sex: Male

DRUGS (20)
  1. DESLORATADINE. [Suspect]
     Active Substance: DESLORATADINE
     Indication: URTICARIA
     Dosage: 5 MG, QD
     Route: 065
     Dates: start: 201601, end: 201601
  2. AZITHROMYCIN ANHYDROUS. [Suspect]
     Active Substance: AZITHROMYCIN ANHYDROUS
     Indication: URTICARIA
     Dosage: 500 MG, QD
     Route: 065
     Dates: start: 20160203, end: 20160209
  3. AMOXICILLIN. [Suspect]
     Active Substance: AMOXICILLIN
     Indication: URTICARIA
     Dosage: UNK
     Route: 065
  4. BETAMETHASONE. [Concomitant]
     Active Substance: BETAMETHASONE
     Indication: PRODUCT USED FOR UNKNOWN INDICATION
     Dosage: UNK
     Route: 061
  5. BILASTINE [Suspect]
     Active Substance: BILASTINE
     Indication: URTICARIA CHRONIC
     Dosage: 60 MG, QD
     Route: 065
     Dates: start: 20160226
  6. BILASTINE [Suspect]
     Active Substance: BILASTINE
     Indication: CHRONIC SPONTANEOUS URTICARIA
     Dosage: 60 MG, UNK
     Route: 065
  7. AMOXICILLIN. [Suspect]
     Active Substance: AMOXICILLIN
     Indication: URTICARIA
     Dosage: 1 GRAM, Q12H
     Route: 048
     Dates: start: 20160226
  8. PREDNISONE. [Suspect]
     Active Substance: PREDNISONE
     Indication: CHRONIC SPONTANEOUS URTICARIA
     Dosage: 10 MILLIGRAM, QD
     Route: 065
  9. AZITHROMYCIN ANHYDROUS. [Suspect]
     Active Substance: AZITHROMYCIN ANHYDROUS
     Indication: CHRONIC SPONTANEOUS URTICARIA
     Dosage: UNK
     Route: 065
  10. BETAMETHASONE SODIUM PHOSPHATE [Concomitant]
     Active Substance: BETAMETHASONE SODIUM PHOSPHATE
     Indication: CHRONIC SPONTANEOUS URTICARIA
     Dosage: UNK
     Route: 065
  11. BISULEPIN HYDROCHLORIDE [Concomitant]
     Active Substance: BISULEPIN HYDROCHLORIDE
     Indication: PRODUCT USED FOR UNKNOWN INDICATION
     Dosage: UNK
     Route: 065
  12. BETAMETHASONE DIPROPIONATE. [Concomitant]
     Active Substance: BETAMETHASONE DIPROPIONATE
     Indication: CHRONIC SPONTANEOUS URTICARIA
     Dosage: UNK
     Route: 065
  13. OMALIZUMAB. [Concomitant]
     Active Substance: OMALIZUMAB
     Indication: PRODUCT USED FOR UNKNOWN INDICATION
     Dosage: UNK
     Route: 065
  14. BETAMETHASONE SODIUM PHOSPHATE [Concomitant]
     Active Substance: BETAMETHASONE SODIUM PHOSPHATE
     Indication: URTICARIA
     Dosage: UNK
     Route: 030
  15. BILASTINE [Suspect]
     Active Substance: BILASTINE
     Indication: PRODUCT USED FOR UNKNOWN INDICATION
     Dosage: 20 MG, QD
     Route: 065
     Dates: start: 201601, end: 201601
  16. PREDNISONE. [Suspect]
     Active Substance: PREDNISONE
     Indication: URTICARIA
     Dosage: 60 MG, QD (60 MG, UNK)
     Route: 065
     Dates: start: 20160212, end: 20160225
  17. AMOXICILLIN. [Suspect]
     Active Substance: AMOXICILLIN
     Indication: CHRONIC SPONTANEOUS URTICARIA
  18. AMOXICILLIN. [Suspect]
     Active Substance: AMOXICILLIN
     Indication: CHRONIC SPONTANEOUS URTICARIA
     Dosage: UNK
     Route: 065
  19. BETAMETHASONE DIPROPIONATE. [Concomitant]
     Active Substance: BETAMETHASONE DIPROPIONATE
     Indication: URTICARIA
     Dosage: UNK
     Route: 030
  20. PREDNISONE. [Suspect]
     Active Substance: PREDNISONE
     Dosage: 40 MG, QD
     Route: 048
     Dates: start: 20160226

REACTIONS (6)
  - Polycythaemia [Unknown]
  - Abdominal pain lower [Recovered/Resolved]
  - Leukocytosis [Unknown]
  - Drug ineffective [Unknown]
  - Nausea [Recovered/Resolved]
  - Prescribed overdose [Unknown]

NARRATIVE: CASE EVENT DATE: 2016
